FAERS Safety Report 22394807 (Version 1)
Quarter: 2023Q2

REPORT INFORMATION
  Report Type: Spontaneous
  Country: UY (occurrence: UY)
  Receive Date: 20230601
  Receipt Date: 20230601
  Transmission Date: 20230722
  Serious: Yes (Other)
  Sender: FDA-Public Use
  Company Number: UY-ViiV Healthcare Limited-UY2023GSK075899

PATIENT

DRUGS (3)
  1. LAMIVUDINE [Suspect]
     Active Substance: LAMIVUDINE
     Indication: HIV infection
     Dosage: UNK
     Route: 064
  2. ZIDOVUDINE [Suspect]
     Active Substance: ZIDOVUDINE
     Indication: HIV infection
     Dosage: UNK
     Route: 064
  3. RITONAVIR\SAQUINAVIR [Suspect]
     Active Substance: RITONAVIR\SAQUINAVIR
     Indication: HIV infection
     Dosage: UNK
     Route: 064

REACTIONS (3)
  - Human immunodeficiency virus transmission [Unknown]
  - HIV infection [Unknown]
  - Foetal exposure during pregnancy [Unknown]
